FAERS Safety Report 6749620-X (Version None)
Quarter: 2010Q2

REPORT INFORMATION
  Report Type: 
  Country: None (occurrence: None)
  Receive Date: 20100601
  Receipt Date: 20100526
  Transmission Date: 20101027
  Serious: Yes (Other)
  Sender: FDA-Public Use
  Company Number: A0861469A

PATIENT
  Age: 57 Year
  Sex: Female

DRUGS (26)
  1. ADVAIR DISKUS 100/50 [Suspect]
     Indication: ASTHMA
     Route: 055
  2. DIGOXIN [Suspect]
     Indication: ATRIAL FIBRILLATION
     Dosage: 1TAB PER DAY
     Route: 048
     Dates: start: 20050101
  3. PREDNISONE TAB [Concomitant]
  4. STEROIDS [Concomitant]
  5. METHOTREXATE [Concomitant]
  6. FOLIC ACID [Concomitant]
  7. POTASSIUM [Concomitant]
  8. PROPAFENONE HCL [Concomitant]
  9. NASONEX [Concomitant]
  10. MUCINEX [Concomitant]
  11. COUMADIN [Concomitant]
  12. VITAMIN D [Concomitant]
  13. ALPRAZOLAM [Concomitant]
  14. FENOFIBRATE [Concomitant]
  15. NEXIUM [Concomitant]
  16. LIPITOR [Concomitant]
  17. ZYRTEC [Concomitant]
  18. TRAMADOL [Concomitant]
  19. DIAVAN [Concomitant]
  20. LASIX [Concomitant]
  21. DIGOXIN [Concomitant]
  22. CYMBALTA [Concomitant]
  23. DILTIAZEM [Concomitant]
  24. COMBIVENT [Concomitant]
  25. NEBULIZER [Concomitant]
  26. REMICADE [Concomitant]

REACTIONS (14)
  - ATRIAL FIBRILLATION [None]
  - BLOOD PRESSURE ABNORMAL [None]
  - BRONCHITIS [None]
  - CANDIDIASIS [None]
  - COUGH [None]
  - DRY MOUTH [None]
  - DYSPNOEA [None]
  - GASTRIC DISORDER [None]
  - HYPERHIDROSIS [None]
  - NAUSEA [None]
  - OXYGEN SATURATION DECREASED [None]
  - PRODUCTIVE COUGH [None]
  - RESPIRATORY RATE INCREASED [None]
  - TONGUE DISORDER [None]
